FAERS Safety Report 4676121-5 (Version None)
Quarter: 2005Q2

REPORT INFORMATION
  Report Type: 
  Country: None (occurrence: None)
  Receive Date: 20050527
  Receipt Date: 20050331
  Transmission Date: 20051028
  Serious: No
  Sender: FDA-Public Use
  Company Number: US-GLAXOSMITHKLINE-A0552134A

PATIENT
  Age: 59 Year
  Sex: Male

DRUGS (17)
  1. WELLBUTRIN XL [Suspect]
     Indication: DEPRESSION
     Dosage: 150MG THREE TIMES PER DAY
     Route: 048
  2. DEPAKOTE [Concomitant]
  3. REMERON [Concomitant]
  4. GABITRIL [Concomitant]
  5. RANITIDINE [Concomitant]
  6. VALTREX [Concomitant]
  7. FLOMAX [Concomitant]
  8. CELEBREX [Concomitant]
  9. ARICEPT [Concomitant]
  10. DITROPAN XL [Concomitant]
  11. PROPRANOLOL [Concomitant]
  12. RESTORIL [Concomitant]
  13. DELATESTRYL [Concomitant]
  14. PRILOSEC [Concomitant]
  15. BENICAR [Concomitant]
  16. NORVASC [Concomitant]
  17. TOPROL-XL [Concomitant]

REACTIONS (5)
  - BLOOD SODIUM DECREASED [None]
  - DEPRESSION [None]
  - GASTROINTESTINAL DISORDER [None]
  - MENTAL DISORDER [None]
  - THINKING ABNORMAL [None]
